FAERS Safety Report 20789967 (Version 2)
Quarter: 2022Q2

REPORT INFORMATION
  Report Type: Spontaneous
  Country: US (occurrence: US)
  Receive Date: 20220505
  Receipt Date: 20220513
  Transmission Date: 20220720
  Serious: Yes (Other)
  Sender: FDA-Public Use
  Company Number: US-GSKCCFUS-Case-01364541_AE-78926

PATIENT

DRUGS (3)
  1. LAMOTRIGINE [Suspect]
     Active Substance: LAMOTRIGINE
     Indication: Lyme disease
     Dosage: 25 MG
     Route: 048
     Dates: start: 202108
  2. LAMOTRIGINE [Suspect]
     Active Substance: LAMOTRIGINE
     Indication: Bacterial infection
  3. PROZAC [Concomitant]
     Active Substance: FLUOXETINE HYDROCHLORIDE
     Indication: Product used for unknown indication
     Dosage: UNK

REACTIONS (13)
  - Altered state of consciousness [Unknown]
  - Hallucination [Unknown]
  - Adverse drug reaction [Unknown]
  - Circadian rhythm sleep disorder [Unknown]
  - Drug hypersensitivity [Unknown]
  - Thinking abnormal [Unknown]
  - Neuropsychiatric symptoms [Unknown]
  - Sleep disorder [Unknown]
  - Diplopia [Recovered/Resolved]
  - Vision blurred [Recovered/Resolved]
  - Stress [Unknown]
  - Off label use [Unknown]
  - Drug effective for unapproved indication [Unknown]

NARRATIVE: CASE EVENT DATE: 20220101
